FAERS Safety Report 13669434 (Version 1)
Quarter: 2017Q2

REPORT INFORMATION
  Report Type: Spontaneous
  Country: IT (occurrence: IT)
  Receive Date: 20170620
  Receipt Date: 20170620
  Transmission Date: 20170830
  Serious: Yes (Hospitalization, Other)
  Sender: FDA-Public Use
  Company Number: IT-MYLANLABS-2017M1036212

PATIENT

DRUGS (3)
  1. TAVOR (LORAZEPAM) [Suspect]
     Active Substance: LORAZEPAM
     Indication: PRODUCT USED FOR UNKNOWN INDICATION
     Dosage: 20 DF, TOTAL
     Route: 048
     Dates: start: 20160406, end: 20160406
  2. CITALOPRAM MYLAN GENERICS 20 MG COMPRESSE RIVESTITE CON FILM [Suspect]
     Active Substance: CITALOPRAM HYDROBROMIDE
     Indication: PRODUCT USED FOR UNKNOWN INDICATION
     Dosage: 10 DF, TOTAL
     Route: 048
     Dates: start: 20160406, end: 20160406
  3. DEPAKIN [Suspect]
     Active Substance: VALPROATE SODIUM
     Indication: PRODUCT USED FOR UNKNOWN INDICATION
     Dosage: 15 DF, TOTAL
     Route: 048
     Dates: start: 20160406, end: 20160406

REACTIONS (4)
  - Overdose [Unknown]
  - Drug use disorder [Recovering/Resolving]
  - Intentional self-injury [Unknown]
  - Sopor [Recovering/Resolving]
